FAERS Safety Report 4837458-X (Version None)
Quarter: 2005Q4

REPORT INFORMATION
  Report Type: 
  Country: None (occurrence: None)
  Receive Date: 20051128
  Receipt Date: 20051117
  Transmission Date: 20060501
  Serious: Yes (Death)
  Sender: FDA-Public Use
  Company Number: AU-JNJFOC-20051104835

PATIENT
  Age: 93 Year
  Sex: Female

DRUGS (1)
  1. RISPERDAL [Suspect]
     Indication: DEMENTIA

REACTIONS (2)
  - MYOCARDIAL INFARCTION [None]
  - PULMONARY OEDEMA [None]
